FAERS Safety Report 16623276 (Version 1)
Quarter: 2019Q3

REPORT INFORMATION
  Report Type: Spontaneous
  Country: JP (occurrence: JP)
  Receive Date: 20190723
  Receipt Date: 20190723
  Transmission Date: 20191004
  Serious: Yes (Death, Other)
  Sender: FDA-Public Use
  Company Number: JP-NAPPMUNDI-GBR-2019-0068573

PATIENT
  Age: 52 Year
  Sex: Female

DRUGS (7)
  1. OXIFAST [Suspect]
     Active Substance: OXYCODONE
     Indication: ABDOMINAL PAIN
     Dosage: 48 MG, DAILY
     Route: 042
  2. OXIFAST [Suspect]
     Active Substance: OXYCODONE
     Dosage: 608.8 MG, DAILY (RESCUE)
     Route: 065
  3. MORPHINE HYDROCHLORIDE [Concomitant]
     Active Substance: MORPHINE HYDROCHLORIDE
  4. MORPHINE HYDROCHLORIDE [Concomitant]
     Active Substance: MORPHINE HYDROCHLORIDE
     Indication: EPIDURAL ANALGESIA
     Dosage: 10 MG, DAILY
     Route: 008
  5. OXIFAST [Suspect]
     Active Substance: OXYCODONE
     Dosage: 160 MG, DAILY
     Route: 042
  6. OXIFAST [Suspect]
     Active Substance: OXYCODONE
     Dosage: 20 MG, DAILY
     Route: 065
     Dates: start: 201803
  7. LEVOBUPIVACAINE HYDROCHLORIDE [Concomitant]
     Active Substance: LEVOBUPIVACAINE HYDROCHLORIDE
     Indication: EPIDURAL ANALGESIA
     Dosage: 0.25 %, UNK
     Route: 008

REACTIONS (3)
  - Death [Fatal]
  - Drug dependence [Unknown]
  - Somnolence [Unknown]
